FAERS Safety Report 8188665-2 (Version None)
Quarter: 2012Q1

REPORT INFORMATION
  Report Type: 
  Country: None (occurrence: None)
  Receive Date: 20120306
  Receipt Date: 20120228
  Transmission Date: 20120608
  Serious: Yes (Hospitalization)
  Sender: FDA-Public Use
  Company Number: AU-JNJFOC-20120204224

PATIENT
  Sex: Female
  Weight: 64 kg

DRUGS (3)
  1. INVEGA SUSTENNA [Suspect]
     Indication: SCHIZOPHRENIA
     Route: 030
  2. INVEGA [Concomitant]
     Indication: SCHIZOPHRENIA
     Route: 048
     Dates: start: 20111201
  3. VALPROATE SODIUM [Concomitant]
     Indication: AFFECTIVE DISORDER
     Route: 048
     Dates: start: 20111201

REACTIONS (1)
  - COGNITIVE DISORDER [None]
